FAERS Safety Report 9375606 (Version 2)
Quarter: 2013Q3

REPORT INFORMATION
  Report Type: Spontaneous
  Country: US (occurrence: US)
  Receive Date: 20130628
  Receipt Date: 20130726
  Transmission Date: 20140515
  Serious: Yes (Hospitalization)
  Sender: FDA-Public Use
  Company Number: US-AMGEN-USASP2013045524

PATIENT
  Age: 64 Year
  Sex: Female

DRUGS (5)
  1. ENBREL [Suspect]
     Indication: PSORIASIS
     Dosage: 50 MG, QWK
     Route: 065
     Dates: start: 20051201
  2. STELERA [Concomitant]
  3. REMICADE [Concomitant]
     Dosage: UNK
  4. KENALOG [Concomitant]
     Dosage: 120 MG, UNK
     Route: 030
  5. CLOBETASOL [Concomitant]
     Dosage: 0.05 %, BID

REACTIONS (4)
  - Surgery [Recovered/Resolved]
  - Skin plaque [Unknown]
  - Drug effect decreased [Unknown]
  - Psoriasis [Recovered/Resolved]
